FAERS Safety Report 9601224 (Version 4)
Quarter: 2013Q4

REPORT INFORMATION
  Report Type: Report from Study
  Country: BE (occurrence: BE)
  Receive Date: 20131005
  Receipt Date: 20131127
  Transmission Date: 20140711
  Serious: No
  Sender: FDA-Public Use
  Company Number: BE-B.I. PHARMACEUTICALS,INC./RIDGEFIELD-2013-BI-28857BI

PATIENT
  Age: 67 Year
  Sex: Male
  Weight: 73 kg

DRUGS (18)
  1. BI 1744 [Suspect]
     Indication: CHRONIC OBSTRUCTIVE PULMONARY DISEASE
     Dosage: 5 MCG
     Route: 055
     Dates: start: 20121227, end: 20130826
  2. BI 1744 [Suspect]
     Indication: CHRONIC OBSTRUCTIVE PULMONARY DISEASE
     Dosage: 5 MCG
     Route: 055
     Dates: start: 20121227, end: 20130826
  3. BI 1744+TIOTROPIUM BROMIDE [Suspect]
     Indication: CHRONIC OBSTRUCTIVE PULMONARY DISEASE
     Dosage: BI 1744 5 MCG + TIOTROPIUM BROMIDE 2.5 MCG FDC
     Route: 055
     Dates: start: 20121227, end: 20130826
  4. CO-LISINOPRIL [Suspect]
     Indication: HYPERTENSION
     Dosage: DAILY DOSE- 20/140MG
     Route: 048
  5. LOSEPRAZOL [Suspect]
     Indication: HYPERTENSION
     Dosage: 200 MG
     Route: 048
  6. TERAZOSABB [Suspect]
     Indication: PROSTATISM
     Dosage: 1 MG
     Route: 048
  7. AMLODIPINE [Suspect]
     Indication: HYPERTENSION
     Dosage: 10 MG
     Route: 048
  8. ATROVENT [Concomitant]
     Indication: CHRONIC OBSTRUCTIVE PULMONARY DISEASE
     Dosage: 160 MCG
     Route: 055
     Dates: start: 20121206, end: 20121226
  9. ATROVENT [Concomitant]
     Dosage: 160 MCG
     Route: 055
     Dates: start: 20130419, end: 20130508
  10. ATROVENT [Concomitant]
     Dosage: 160 MCG
     Route: 055
     Dates: start: 20130621, end: 20130710
  11. ATROVENT [Concomitant]
     Dosage: 160 MCG
     Route: 055
     Dates: start: 20130214, end: 20130317
  12. FLIXOTIDE [Concomitant]
     Indication: CHRONIC OBSTRUCTIVE PULMONARY DISEASE
     Dosage: 1000 MCG
     Route: 055
     Dates: start: 20121211, end: 20130822
  13. ALLOPURINOL [Concomitant]
     Indication: HYPERURICAEMIA
     Dosage: 300 MG
     Route: 048
  14. SIMVASTATIN [Concomitant]
     Indication: HYPERCHOLESTEROLAEMIA
     Dosage: 20 MG
     Route: 048
  15. ASAFLOW [Concomitant]
     Indication: ARRHYTHMIA
     Dosage: 80 MG
     Route: 048
     Dates: start: 20130430
  16. PANTOMED [Concomitant]
     Indication: PROPHYLAXIS
     Dosage: 20 MG
     Route: 048
     Dates: start: 20130430
  17. BURINOL [Concomitant]
     Indication: OEDEMA PERIPHERAL
     Dosage: 1 MG
     Route: 048
     Dates: start: 20130707
  18. DAFLON [Concomitant]
     Indication: OEDEMA PERIPHERAL
     Dosage: 1000 MG
     Route: 048
     Dates: start: 20130707

REACTIONS (2)
  - Cardiac pacemaker insertion [Recovered/Resolved]
  - Sick sinus syndrome [Recovered/Resolved]
